FAERS Safety Report 7309534-3 (Version None)
Quarter: 2011Q1

REPORT INFORMATION
  Report Type: 
  Country: None (occurrence: None)
  Receive Date: 20110223
  Receipt Date: 20110216
  Transmission Date: 20110831
  Serious: Yes (Other)
  Sender: FDA-Public Use
  Company Number: US-B.I. PHARMACEUTICALS,INC./RIDGEFIELD-2011-BP-03364BP

PATIENT
  Sex: Female

DRUGS (5)
  1. CATAPRES-TTS-1 [Suspect]
     Indication: HYPERTENSION
     Dosage: 0.1 MG
     Route: 061
     Dates: start: 20080301
  2. DIOVAN [Concomitant]
     Indication: HYPERTENSION
  3. METOPROLOL [Concomitant]
     Indication: HYPERTENSION
  4. CATAPRES-TTS-1 [Suspect]
     Dosage: 0.2 MG
     Route: 061
  5. CATAPRES-TTS-1 [Suspect]
     Dosage: 0.3 MG
     Route: 061

REACTIONS (2)
  - HYPERTENSION [None]
  - DRUG INEFFECTIVE [None]
